FAERS Safety Report 6252448-0 (Version None)
Quarter: 2009Q3

REPORT INFORMATION
  Report Type: 
  Country: None (occurrence: None)
  Receive Date: 20090701
  Receipt Date: 20070621
  Transmission Date: 20100115
  Serious: Yes (Other)
  Sender: FDA-Public Use
  Company Number: US-ASTRAZENECA-2006UW25055

PATIENT
  Age: 552 Month
  Sex: Male
  Weight: 106.6 kg

DRUGS (8)
  1. SEROQUEL [Suspect]
     Indication: DEPRESSION
     Route: 048
     Dates: start: 19990401, end: 20010501
  2. THORAZINE [Concomitant]
  3. ZYPREXA [Concomitant]
  4. CELEXA [Concomitant]
  5. ETODOLAC [Concomitant]
     Dates: start: 20041202
  6. METFORMIN HCL [Concomitant]
     Dates: start: 20041203
  7. PRAVACHOL [Concomitant]
     Dates: start: 20041203
  8. GABAPENTIN [Concomitant]
     Dates: start: 20041207

REACTIONS (4)
  - DIABETES MELLITUS [None]
  - DIABETIC NEUROPATHY [None]
  - FUNGAL SKIN INFECTION [None]
  - TYPE 2 DIABETES MELLITUS [None]
